FAERS Safety Report 7791554-6 (Version None)
Quarter: 2011Q4

REPORT INFORMATION
  Report Type: 
  Country: None (occurrence: None)
  Receive Date: 20111003
  Receipt Date: 20110929
  Transmission Date: 20120403
  Serious: Yes (Other)
  Sender: FDA-Public Use
  Company Number: US-ROXANE LABORATORIES, INC.-2011-RO-01382RO

PATIENT
  Age: 17 Year
  Sex: Male

DRUGS (1)
  1. METHADONE HCL [Suspect]
     Route: 048

REACTIONS (4)
  - LOSS OF CONSCIOUSNESS [None]
  - NAUSEA [None]
  - DRUG ABUSE [None]
  - HYPOAESTHESIA [None]
